FAERS Safety Report 13702886 (Version 3)
Quarter: 2017Q4

REPORT INFORMATION
  Report Type: Other
  Country: US (occurrence: US)
  Receive Date: 20170629
  Receipt Date: 20171006
  Transmission Date: 20180320
  Serious: Yes (Hospitalization, Other)
  Sender: FDA-Public Use
  Company Number: US-BEXIMCO-2017BEX00011

PATIENT
  Age: 71 Year
  Sex: Female
  Weight: 79.37 kg

DRUGS (21)
  1. PROTONIX [Concomitant]
     Active Substance: PANTOPRAZOLE SODIUM
     Dosage: 40 MG, 1X/DAY
  2. SOTALOL. [Suspect]
     Active Substance: SOTALOL
     Dosage: 80 MG (TITER), 2X/DAY
     Dates: start: 20160627
  3. CARVEDILOL. [Suspect]
     Active Substance: CARVEDILOL
     Dosage: 3.125 MG, 4X/DAY
     Route: 048
     Dates: end: 2017
  4. CARVEDILOL. [Suspect]
     Active Substance: CARVEDILOL
     Indication: ATRIAL FIBRILLATION
     Dosage: 3.125 MG, 2X/DAY
     Route: 048
  5. CARVEDILOL. [Suspect]
     Active Substance: CARVEDILOL
     Dosage: 6.25 MG, 1X/DAY IN THE EVENING
     Route: 048
  6. SOTALOL. [Suspect]
     Active Substance: SOTALOL
     Dosage: 40 MG, 2X/DAY
  7. TOPROL XL [Suspect]
     Active Substance: METOPROLOL SUCCINATE
     Indication: ATRIAL FIBRILLATION
     Dosage: UNK
     Dates: start: 201602
  8. CITALOPRAM [Concomitant]
     Active Substance: CITALOPRAM HYDROBROMIDE
     Dosage: 20 MG, 1X/DAY
     Route: 048
  9. SINGULAIR [Concomitant]
     Active Substance: MONTELUKAST SODIUM
     Dosage: 10 MG, 1X/DAY
     Route: 048
  10. CARVEDILOL. [Suspect]
     Active Substance: CARVEDILOL
     Dosage: 6.25 MG, 2X/DAY
     Route: 048
     Dates: start: 201602, end: 2017
  11. SOTALOL. [Suspect]
     Active Substance: SOTALOL
     Indication: ATRIAL FIBRILLATION
     Dosage: 40 MG, 2X/DAY
     Route: 048
     Dates: start: 20160414, end: 20160627
  12. MAGNESIUM [Concomitant]
     Active Substance: MAGNESIUM
     Dosage: 400 MG, 1X/DAY
     Route: 048
  13. CALCIUM; VITAMIN D [Concomitant]
     Dosage: 600 MG, 1X/DAY
     Route: 048
  14. NASONEX [Concomitant]
     Active Substance: MOMETASONE FUROATE
     Dosage: 2 DOSAGE UNITS, 1X/DAY IN EACH NOSTRIL
     Route: 045
  15. PRESERVISION AREDS 2 [Concomitant]
     Active Substance: MINERALS\VITAMINS
  16. AMBIEN [Concomitant]
     Active Substance: ZOLPIDEM TARTRATE
     Dosage: 10 MG, UP TO 1X/DAY AS NEEDED
  17. CARVEDILOL. [Suspect]
     Active Substance: CARVEDILOL
     Indication: BLOOD PRESSURE INADEQUATELY CONTROLLED
     Dosage: 3.125 MG, 1X/DAY IN THE MORNING
     Route: 048
  18. ECOTRIN [Suspect]
     Active Substance: ASPIRIN
     Indication: THROMBOSIS PROPHYLAXIS
     Dosage: 81 MG, 1X/DAY
     Route: 048
  19. CARVEDILOL. [Suspect]
     Active Substance: CARVEDILOL
     Dosage: 3.125 MG, AS NEEDED
     Dates: start: 2016
  20. TRAMADOL. [Suspect]
     Active Substance: TRAMADOL
     Dosage: 50 MG, EVERY 6 HOURS AS NEEDED
     Route: 048
  21. ATORVASTATIN [Concomitant]
     Active Substance: ATORVASTATIN
     Dosage: 40 MG, 1X/DAY
     Route: 048

REACTIONS (27)
  - Pericardial effusion [Unknown]
  - Hypotension [None]
  - Dizziness [Unknown]
  - Inappropriate schedule of drug administration [Recovered/Resolved]
  - Dehydration [Recovering/Resolving]
  - Contusion [Unknown]
  - Atrial fibrillation [Recovered/Resolved]
  - Product substitution issue [Recovered/Resolved]
  - Blood magnesium decreased [Recovering/Resolving]
  - Troponin I increased [Recovered/Resolved]
  - Depression [Recovered/Resolved]
  - Insomnia [Unknown]
  - Left ventricular dysfunction [Unknown]
  - Oesophageal spasm [Recovering/Resolving]
  - Drug ineffective for unapproved indication [Recovered/Resolved]
  - Knee arthroplasty [Recovered/Resolved]
  - Hiatus hernia [Recovering/Resolving]
  - Weight increased [Recovered/Resolved]
  - Palpitations [Unknown]
  - Nausea [Recovered/Resolved]
  - Heart sounds abnormal [Unknown]
  - Diabetes mellitus inadequate control [Recovered/Resolved]
  - Blood pressure inadequately controlled [Recovered/Resolved]
  - Chest pain [Recovering/Resolving]
  - Arthralgia [Recovered/Resolved]
  - Hunger [Recovered/Resolved]
  - Myalgia [Unknown]

NARRATIVE: CASE EVENT DATE: 2016
